FAERS Safety Report 5929371-1 (Version None)
Quarter: 2008Q3

REPORT INFORMATION
  Report Type: 
  Country: None (occurrence: None)
  Receive Date: 20080924
  Receipt Date: 20080110
  Transmission Date: 20090109
  Serious: Yes (Hospitalization)
  Sender: FDA-Public Use
  Company Number: US-WYE-H02061108

PATIENT
  Age: 23 Year
  Sex: Female

DRUGS (9)
  1. RAPAMUNE [Suspect]
     Indication: PROPHYLAXIS AGAINST TRANSPLANT REJECTION
     Dosage: 5 MG 2X PER 1 DAY, ORAL
     Route: 048
  2. NICOTINE [Concomitant]
  3. ASPIRIN [Concomitant]
  4. KEPPRA [Concomitant]
  5. LYRICA [Concomitant]
  6. LEXAPRO [Concomitant]
  7. RISPERDAL [Concomitant]
  8. MULTIVITAMINS (ASCORBIC ACID/ERGOCALCIFEROL/FOLIC ACID/NICOTINAMIDE/PA [Concomitant]
  9. VALIUM [Concomitant]

REACTIONS (1)
  - LEUKOPENIA [None]
